FAERS Safety Report 7665144-X (Version None)
Quarter: 2011Q3

REPORT INFORMATION
  Report Type: 
  Country: None (occurrence: None)
  Receive Date: 20110806
  Receipt Date: 20110302
  Transmission Date: 20111222
  Serious: No
  Sender: FDA-Public Use
  Company Number: US-ABBOTT-11P-163-0709480-00

PATIENT
  Sex: Male
  Weight: 128.48 kg

DRUGS (4)
  1. METFORMIN HCL [Concomitant]
     Indication: DIABETES MELLITUS
  2. VITAMIN D [Concomitant]
     Indication: PRODUCT USED FOR UNKNOWN INDICATION
  3. NIASPAN [Suspect]
     Indication: BLOOD CHOLESTEROL INCREASED
     Dates: start: 20110114
  4. LISINOPRIL HTCZ [Concomitant]
     Indication: HYPERTENSION
     Dosage: 25/12.5 MG DAILY

REACTIONS (3)
  - PARAESTHESIA [None]
  - FLUSHING [None]
  - SKIN WARM [None]
